FAERS Safety Report 14274334 (Version 2)
Quarter: 2017Q4

REPORT INFORMATION
  Report Type: Spontaneous
  Country: US (occurrence: US)
  Receive Date: 20171212
  Receipt Date: 20171214
  Transmission Date: 20180321
  Serious: Yes (Other)
  Sender: FDA-Public Use
  Company Number: US-BAYER-2017-233488

PATIENT
  Age: 22 Year
  Sex: Female

DRUGS (3)
  1. SKYLA [Suspect]
     Active Substance: LEVONORGESTREL
     Indication: MENORRHAGIA
  2. SKYLA [Suspect]
     Active Substance: LEVONORGESTREL
     Indication: CONTRACEPTION
     Dosage: 14 MCG/24HR, CONT
     Route: 015
     Dates: start: 201602, end: 20171103
  3. SKYLA [Suspect]
     Active Substance: LEVONORGESTREL
     Indication: VAGINAL HAEMORRHAGE

REACTIONS (8)
  - Device dislocation [None]
  - Urinary tract infection [None]
  - Pain [None]
  - Drug ineffective [None]
  - Haemorrhage in pregnancy [Recovering/Resolving]
  - Pregnancy with contraceptive device [None]
  - Abortion spontaneous [None]
  - Urinary tract infection [None]

NARRATIVE: CASE EVENT DATE: 201709
